FAERS Safety Report 16181722 (Version 1)
Quarter: 2019Q2

REPORT INFORMATION
  Report Type: Spontaneous
  Country: CN (occurrence: CN)
  Receive Date: 20190410
  Receipt Date: 20190410
  Transmission Date: 20190711
  Serious: Yes (Other)
  Sender: FDA-Public Use
  Company Number: CN-BAXTER-2019BAX007079

PATIENT
  Age: 58 Year
  Sex: Female

DRUGS (8)
  1. METOCLOPRAMIDE. [Suspect]
     Active Substance: METOCLOPRAMIDE
     Indication: ADVERSE EVENT
     Route: 030
     Dates: start: 20190320
  2. 5% GLUCOSE  INJECTION [Suspect]
     Active Substance: DEXTROSE
     Indication: ADVERSE EVENT
     Route: 065
     Dates: start: 20190320
  3. SODIUM [Suspect]
     Active Substance: SODIUM
     Indication: ADVERSE EVENT
     Route: 065
     Dates: start: 20190319
  4. 0.9% SODIUM CHLORIDE INJECTION [Suspect]
     Active Substance: SODIUM CHLORIDE
     Indication: ADVERSE EVENT
     Route: 065
     Dates: start: 20190320
  5. OXYGEN. [Suspect]
     Active Substance: OXYGEN
     Indication: ADVERSE EVENT
     Route: 055
     Dates: start: 20190319
  6. ENDOXAN [Suspect]
     Active Substance: CYCLOPHOSPHAMIDE
     Indication: BREAST CANCER
     Dosage: IVGTT, ONCE
     Route: 041
     Dates: start: 20190319, end: 20190319
  7. RABEPRAZOLE [Suspect]
     Active Substance: RABEPRAZOLE
     Indication: ADVERSE EVENT
     Route: 065
     Dates: start: 20190320
  8. PROMETHAZINE [Suspect]
     Active Substance: PROMETHAZINE\PROMETHAZINE HYDROCHLORIDE
     Indication: ADVERSE EVENT
     Route: 065
     Dates: start: 20190320

REACTIONS (13)
  - Depressed level of consciousness [Recovered/Resolved]
  - Mania [Recovered/Resolved]
  - Oedema peripheral [Recovered/Resolved]
  - Nausea [Recovered/Resolved]
  - Headache [Recovered/Resolved]
  - Anuria [Recovered/Resolved]
  - Vomiting [Recovered/Resolved]
  - Hypoaesthesia [Recovered/Resolved]
  - Delirium [Recovered/Resolved]
  - Dysphoria [Recovered/Resolved]
  - Speech disorder [Recovered/Resolved]
  - Dizziness [Recovered/Resolved]
  - Nausea [Recovered/Resolved]

NARRATIVE: CASE EVENT DATE: 20190319
